FAERS Safety Report 15454090 (Version 1)
Quarter: 2018Q4

REPORT INFORMATION
  Report Type: Spontaneous
  Country: US (occurrence: US)
  Receive Date: 20181002
  Receipt Date: 20181002
  Transmission Date: 20190204
  Serious: Yes (Death)
  Sender: FDA-Public Use
  Company Number: US-MALLINCKRODT-T201804238

PATIENT
  Age: 60 Year
  Sex: Male

DRUGS (1)
  1. DEXTROAMPHET SACCHARAT, AMPHET ASPARTATE, DEXTROAMPHET SULFATE AND AMPHET SULFAT [Suspect]
     Active Substance: AMPHETAMINE ASPARTATE\AMPHETAMINE SULFATE\DEXTROAMPHETAMINE SACCHARATE\DEXTROAMPHETAMINE SULFATE
     Indication: PRODUCT USED FOR UNKNOWN INDICATION
     Dosage: UNKNOWN
     Route: 065

REACTIONS (14)
  - Acute lung injury [Fatal]
  - Delirium [Fatal]
  - Hepatotoxicity [Fatal]
  - Thrombocytopenia [Fatal]
  - Hyperreflexia [Fatal]
  - Tremor [Fatal]
  - Metabolic acidosis [Fatal]
  - Anion gap [Fatal]
  - Acute kidney injury [Fatal]
  - Acute respiratory distress syndrome [Fatal]
  - Toxicity to various agents [Fatal]
  - Myocardial ischaemia [Fatal]
  - Agitation [Fatal]
  - Rhabdomyolysis [Fatal]
